FAERS Safety Report 13574456 (Version 2)
Quarter: 2017Q2

REPORT INFORMATION
  Report Type: Spontaneous
  Country: US (occurrence: US)
  Receive Date: 20170523
  Receipt Date: 20170623
  Transmission Date: 20170830
  Serious: Yes (Other)
  Sender: FDA-Public Use
  Company Number: US-BAYER-2017-091875

PATIENT
  Age: 47 Year
  Sex: Female

DRUGS (1)
  1. ADEMPAS [Suspect]
     Active Substance: RIOCIGUAT
     Indication: PULMONARY HYPERTENSION
     Dosage: 1 MG, TID
     Dates: start: 2015

REACTIONS (3)
  - Pneumonia aspiration [Recovered/Resolved]
  - Wrong technique in product usage process [None]
  - Incorrect route of drug administration [None]
